FAERS Safety Report 5028863-X (Version None)
Quarter: 2006Q2

REPORT INFORMATION
  Report Type: 
  Country: None (occurrence: None)
  Receive Date: 20060619
  Receipt Date: 20060613
  Transmission Date: 20061013
  Serious: Yes (Death)
  Sender: FDA-Public Use
  Company Number: US-JNJFOC-20060603667

PATIENT
  Sex: Male
  Weight: 61.24 kg

DRUGS (5)
  1. FENTANYL TRANSDERMAL SYSTEM [Suspect]
     Indication: PAIN
     Route: 062
  2. OXYCODONE HCL [Concomitant]
     Indication: PAIN
     Route: 065
  3. METOPROLOL TARTRATE [Concomitant]
     Indication: HEART RATE
     Route: 065
  4. LISINOPRIL [Concomitant]
     Indication: RENAL IMPAIRMENT
  5. INSULIN [Concomitant]
     Indication: DIABETES MELLITUS

REACTIONS (1)
  - METASTATIC NEOPLASM [None]
